FAERS Safety Report 9074834 (Version 1)
Quarter: 2013Q1

REPORT INFORMATION
  Report Type: Spontaneous
  Country: FR (occurrence: FR)
  Receive Date: 20130129
  Receipt Date: 20130129
  Transmission Date: 20140127
  Serious: Yes (Other)
  Sender: FDA-Public Use
  Company Number: FR-AMGEN-FRASP2010003323

PATIENT
  Age: 49 Year
  Sex: Female

DRUGS (10)
  1. ARANESP [Suspect]
     Indication: ANAEMIA OF MALIGNANT DISEASE
     Route: 058
  2. TAXOTERE [Concomitant]
     Dosage: 155 MG, UNK
     Route: 042
     Dates: start: 20100825, end: 20101006
  3. DEXAMETHASONE [Concomitant]
     Dosage: 20 MG, UNK
     Route: 042
     Dates: start: 20100825, end: 20101006
  4. ZOPHREN                            /00955301/ [Concomitant]
     Dosage: 8 MG, UNK
     Route: 042
     Dates: start: 20100825, end: 20101006
  5. TARDYFERON /00023503/ [Concomitant]
     Route: 048
  6. AZANTAC [Concomitant]
     Dosage: 50 MG, UNK
     Route: 042
     Dates: start: 20100825, end: 20101006
  7. ATARAX                             /00058401/ [Concomitant]
     Dosage: 25 MG, UNK
     Route: 042
     Dates: start: 20100825, end: 20101006
  8. FLUOROURACIL [Concomitant]
     Dosage: 500 MG/M2, UNK
  9. EPIRUBICINE [Concomitant]
     Dosage: 100 MG/M2, UNK
  10. CYCLOPHOSPHAMIDE [Suspect]

REACTIONS (2)
  - Myalgia [Unknown]
  - Paraesthesia [Unknown]
